FAERS Safety Report 6619352-7 (Version None)
Quarter: 2010Q1

REPORT INFORMATION
  Report Type: 
  Country: None (occurrence: None)
  Receive Date: 20100308
  Receipt Date: 20090729
  Transmission Date: 20100710
  Serious: No
  Sender: FDA-Public Use
  Company Number: US-TYCO HEALTHCARE/MALLINCKRODT-T200901432

PATIENT
  Age: 61 Year
  Sex: Female
  Weight: 56.8 kg

DRUGS (8)
  1. RESTORIL [Suspect]
  2. LUNESTA [Suspect]
     Indication: INSOMNIA
     Dosage: 3 MG, HS
     Route: 048
     Dates: start: 20090601
  3. AMBIEN [Suspect]
  4. NORTRIPTYLINE HCL [Concomitant]
  5. CLONAZEPAM [Concomitant]
  6. IRON [Concomitant]
  7. EFFEXOR [Concomitant]
  8. VITAMINS                           /90003601/ [Concomitant]

REACTIONS (1)
  - INSOMNIA [None]
